FAERS Safety Report 7311710-0 (Version None)
Quarter: 2011Q1

REPORT INFORMATION
  Report Type: 
  Country: None (occurrence: None)
  Receive Date: 20110224
  Receipt Date: 20110215
  Transmission Date: 20110831
  Serious: Yes (Other)
  Sender: FDA-Public Use
  Company Number: US-AMGEN-USASP2011009308

PATIENT
  Age: 78 Year
  Sex: Female

DRUGS (9)
  1. HUMALOG PEN MIX [Concomitant]
  2. OSCAL D                            /00944201/ [Concomitant]
  3. PROLIA [Suspect]
     Indication: OSTEOPOROSIS POSTMENOPAUSAL
     Dates: start: 20100801
  4. NIFEDIPINE [Concomitant]
  5. HYDROCHLOROTHIAZIDE [Concomitant]
  6. ZOCOR [Concomitant]
  7. CLONIDINE [Concomitant]
  8. LANTUS [Concomitant]
  9. GLIPIZIDE [Concomitant]

REACTIONS (5)
  - INSOMNIA [None]
  - HYPERGLYCAEMIA [None]
  - PAIN [None]
  - GOUT [None]
  - BLOOD PRESSURE SYSTOLIC INCREASED [None]
